FAERS Safety Report 8303958-3 (Version None)
Quarter: 2012Q2

REPORT INFORMATION
  Report Type: 
  Country: None (occurrence: None)
  Receive Date: 20120423
  Receipt Date: 20120419
  Transmission Date: 20120825
  Serious: Yes (Hospitalization)
  Sender: FDA-Public Use
  Company Number: PHHY2012IT025081

PATIENT
  Sex: Female

DRUGS (2)
  1. ZOMETA [Suspect]
     Indication: MULTIPLE MYELOMA
     Dosage: UNK UKN, UNK
     Dates: start: 20090101, end: 20100101
  2. ZOMETA [Suspect]
     Dosage: UNK UKN, UNK
     Dates: start: 20110401, end: 20120202

REACTIONS (1)
  - OSTEONECROSIS OF JAW [None]
